FAERS Safety Report 4619197-3 (Version None)
Quarter: 2005Q1

REPORT INFORMATION
  Report Type: 
  Country: None (occurrence: None)
  Receive Date: 20050325
  Receipt Date: 20050316
  Transmission Date: 20050727
  Serious: Yes (Hospitalization, Other)
  Sender: FDA-Public Use
  Company Number: GB-JNJFOC-20050304299

PATIENT
  Sex: Male
  Weight: 87 kg

DRUGS (9)
  1. REMICADE [Suspect]
     Indication: RHEUMATOID ARTHRITIS
     Route: 042
  2. PREDNISOLONE [Concomitant]
  3. PARACETAMOL [Concomitant]
  4. TRAMADOL HCL [Concomitant]
  5. LEFLUNOMIDE [Concomitant]
  6. LOSEC [Concomitant]
  7. MS CONTIN [Concomitant]
  8. GABAPENTIN [Concomitant]
  9. ORAMORPH SR [Concomitant]

REACTIONS (1)
  - GASTRIC ULCER [None]
